FAERS Safety Report 5788339-9 (Version None)
Quarter: 2008Q2

REPORT INFORMATION
  Report Type: 
  Country: None (occurrence: None)
  Receive Date: 20080625
  Receipt Date: 20080613
  Transmission Date: 20081010
  Serious: Yes (Other)
  Sender: FDA-Public Use
  Company Number: GB-PFIZER INC-2008050487

PATIENT
  Sex: Female

DRUGS (2)
  1. NEURONTIN [Suspect]
     Indication: NEURALGIA
  2. HYDROCORTISONE [Concomitant]

REACTIONS (5)
  - DRY EYE [None]
  - NASAL DRYNESS [None]
  - NEOPLASM MALIGNANT [None]
  - NEOPLASM SKIN [None]
  - SKIN CANCER [None]
